FAERS Safety Report 10093621 (Version 1)
Quarter: 2014Q2

REPORT INFORMATION
  Report Type: Spontaneous
  Country: US (occurrence: US)
  Receive Date: 20140421
  Receipt Date: 20140421
  Transmission Date: 20141212
  Serious: No
  Sender: FDA-Public Use
  Company Number: US-SA-2014SA002470

PATIENT
  Sex: 0

DRUGS (5)
  1. ALLEGRA [Suspect]
     Indication: NASOPHARYNGITIS
     Route: 048
  2. ADVIL [Concomitant]
     Indication: NASOPHARYNGITIS
  3. MUCINEX [Concomitant]
     Indication: NASOPHARYNGITIS
  4. TYLENOL [Concomitant]
     Indication: NASOPHARYNGITIS
  5. CLARITIN [Concomitant]
     Indication: NASOPHARYNGITIS

REACTIONS (1)
  - Extra dose administered [Unknown]
